FAERS Safety Report 4718403-4 (Version None)
Quarter: 2005Q3

REPORT INFORMATION
  Report Type: 
  Country: None (occurrence: None)
  Receive Date: 20050720
  Receipt Date: 20050511
  Transmission Date: 20060218
  Serious: Yes (Death, Life-Threatening)
  Sender: FDA-Public Use
  Company Number: PHBS2005JP06673

PATIENT
  Age: 60 Year
  Sex: Female

DRUGS (3)
  1. FLUCONAZOLE [Concomitant]
  2. FUNGUARD [Concomitant]
  3. SANDIMMUNE [Suspect]
     Indication: UNRELATED DONOR BONE MARROW TRANSPLANTATION THERAPY
     Dosage: 60 MG/DAY
     Route: 042
     Dates: start: 20050411, end: 20040512

REACTIONS (3)
  - BLOOD AMYLASE INCREASED [None]
  - CYTOMEGALOVIRUS INFECTION [None]
  - PANCREATITIS ACUTE [None]
